FAERS Safety Report 23521490 (Version 1)
Quarter: 2024Q1

REPORT INFORMATION
  Report Type: Spontaneous
  Country: GB (occurrence: GB)
  Receive Date: 20240214
  Receipt Date: 20240214
  Transmission Date: 20240410
  Serious: Yes (Death, Hospitalization, Other)
  Sender: FDA-Public Use
  Company Number: GB-CLINIGEN-GB-CLI-2023-043384

PATIENT
  Age: 55 Year
  Sex: Male
  Weight: 72.8 kg

DRUGS (59)
  1. ATENOLOL [Suspect]
     Active Substance: ATENOLOL
     Indication: Metastatic malignant melanoma
     Dosage: UNK
     Route: 050
     Dates: start: 20230822, end: 20230822
  2. ALDESLEUKIN [Suspect]
     Active Substance: ALDESLEUKIN
     Indication: Metastatic malignant melanoma
     Dosage: 1 DOSAGE FORM, ONCE A DAY (1.86 MILLION INTERNATIONAL UNIT)
     Route: 050
     Dates: start: 20230822, end: 20230829
  3. CYCLOPHOSPHAMIDE [Suspect]
     Active Substance: CYCLOPHOSPHAMIDE
     Indication: Metastatic malignant melanoma
     Dosage: 550 MILLIGRAM, ONCE A DAY
     Route: 050
     Dates: start: 20230816, end: 20230818
  4. FLUDARABINE [Suspect]
     Active Substance: FLUDARABINE PHOSPHATE
     Indication: Metastatic malignant melanoma
     Dosage: 55 MILLIGRAM, ONCE A DAY
     Route: 050
     Dates: start: 20230816, end: 20230818
  5. NIVOLUMAB [Suspect]
     Active Substance: NIVOLUMAB
     Indication: Metastatic malignant melanoma
     Dosage: 240 MILLIGRAM
     Route: 050
     Dates: start: 20230815, end: 20230815
  6. ACYCLOVIR [Concomitant]
     Active Substance: ACYCLOVIR
     Indication: Prophylaxis
     Dosage: 400 MILLIGRAM, TWO TIMES A DAY
     Route: 050
     Dates: start: 20230816, end: 20230911
  7. CALCIUM CARBONATE\CHOLECALCIFEROL [Concomitant]
     Active Substance: CALCIUM CARBONATE\CHOLECALCIFEROL
     Indication: Hypocalcaemia
     Dosage: UNK (3000/800 UNITS)
     Route: 065
     Dates: start: 20230822, end: 20230823
  8. AMILORIDE [Concomitant]
     Active Substance: AMILORIDE
     Indication: Hypokalaemia
     Dosage: 5 GRAM
     Route: 050
     Dates: start: 20230831, end: 20230906
  9. AMILORIDE [Concomitant]
     Active Substance: AMILORIDE
     Dosage: 10 MILLIGRAM, ONCE A DAY
     Route: 050
     Dates: start: 20230908, end: 20230924
  10. AMLODIPINE [Concomitant]
     Active Substance: AMLODIPINE BESYLATE
     Indication: Hypertension
     Dosage: 5 MILLIGRAM, ONCE A DAY
     Route: 050
     Dates: start: 20230902, end: 20230907
  11. AMLODIPINE [Concomitant]
     Active Substance: AMLODIPINE BESYLATE
     Dosage: 10 MILLIGRAM, ONCE A DAY
     Route: 050
     Dates: start: 20230907, end: 20230928
  12. AZITHROMYCIN [Concomitant]
     Active Substance: AZITHROMYCIN
     Indication: Prophylaxis
     Dosage: 1500 MILLIGRAM (3 TIMES A WEEK, TIW)
     Route: 050
     Dates: start: 20230830, end: 20230927
  13. CHLORPHENIRAMINE MALEATE [Concomitant]
     Active Substance: CHLORPHENIRAMINE MALEATE
     Indication: Premedication
     Dosage: 10 MILLIGRAM
     Route: 050
     Dates: start: 20230822, end: 20230822
  14. CHOLECALCIFEROL [Concomitant]
     Active Substance: CHOLECALCIFEROL
     Indication: Supplementation therapy
     Dosage: 800 INTERNATIONAL UNIT, ONCE A DAY
     Route: 050
     Dates: start: 20200101
  15. CHOLECALCIFEROL [Concomitant]
     Active Substance: CHOLECALCIFEROL
     Dosage: 800 INTERNATIONAL UNIT
     Route: 050
     Dates: start: 20200101, end: 20230923
  16. CIPROFLOXACIN [Concomitant]
     Active Substance: CIPROFLOXACIN
     Indication: Infection
     Dosage: 500 MILLIGRAM, TWO TIMES A DAY
     Route: 050
     Dates: start: 20230831, end: 20230905
  17. CLARITHROMYCIN [Concomitant]
     Active Substance: CLARITHROMYCIN
     Indication: Prophylaxis
     Dosage: 1500 MILLIGRAM (3 TIMES PER WEEK, TIW)
     Route: 050
     Dates: start: 20230830
  18. AMOXICILLIN\CLAVULANATE POTASSIUM [Concomitant]
     Active Substance: AMOXICILLIN\CLAVULANATE POTASSIUM
     Indication: C-reactive protein increased
     Dosage: 625 MILLIGRAM (2 X 625 MG THEN SWITCHED TO IV)
     Route: 050
     Dates: start: 20230817, end: 20230818
  19. AMOXICILLIN\CLAVULANATE POTASSIUM [Concomitant]
     Active Substance: AMOXICILLIN\CLAVULANATE POTASSIUM
     Dosage: 3600 MILLIGRAM, 3 TIMES PER WEEK, TIW
     Route: 050
     Dates: start: 20230818, end: 20230823
  20. COTRIMOXAZOLE [Concomitant]
     Active Substance: SULFAMETHOXAZOLE\TRIMETHOPRIM
     Indication: Atypical pneumonia
     Dosage: 960 MG, BIWEEKLY
     Route: 065
     Dates: start: 20230816, end: 20230817
  21. COTRIMOXAZOLE [Concomitant]
     Active Substance: SULFAMETHOXAZOLE\TRIMETHOPRIM
     Dosage: UNK, EVERY WEEK
     Route: 065
     Dates: start: 20230817, end: 20230829
  22. DOXAZOSIN [Concomitant]
     Active Substance: DOXAZOSIN MESYLATE
     Indication: Hypertension
     Dosage: 2 MILLIGRAM, 3 TIMES A DAY
     Route: 050
     Dates: start: 20230907, end: 20230920
  23. ENOXAPARIN [Concomitant]
     Active Substance: ENOXAPARIN
     Indication: Deep vein thrombosis
     Dosage: 100 MILLIGRAM
     Route: 050
     Dates: start: 20230816, end: 20230821
  24. ENOXAPARIN [Concomitant]
     Active Substance: ENOXAPARIN
     Dosage: 60, 80 MG
     Route: 050
     Dates: start: 20230822, end: 20230830
  25. ENOXAPARIN [Concomitant]
     Active Substance: ENOXAPARIN
     Dosage: 100 MILLIGRAM, ONCE A DAY
     Route: 050
     Dates: start: 20230831, end: 20230831
  26. ENOXAPARIN [Concomitant]
     Active Substance: ENOXAPARIN
     Dosage: 40 MG, QD
     Route: 050
     Dates: start: 20230902, end: 20230902
  27. ENOXAPARIN [Concomitant]
     Active Substance: ENOXAPARIN
     Dosage: 100 MG, QD
     Route: 050
     Dates: start: 20230904, end: 20230909
  28. FAMOTIDINE [Concomitant]
     Active Substance: FAMOTIDINE
     Indication: Gastrooesophageal reflux disease
     Dosage: 20 MILLIGRAM, ONCE A DAY
     Route: 050
     Dates: start: 20230818, end: 20230910
  29. FLUCONAZOLE [Concomitant]
     Active Substance: FLUCONAZOLE
     Indication: Prophylaxis
     Dosage: 100 MILLIGRAM
     Route: 050
     Dates: start: 20230816, end: 20230908
  30. FUROSEMIDE [Concomitant]
     Active Substance: FUROSEMIDE
     Indication: Pulmonary oedema
     Dosage: 400 MILLIGRAM
     Route: 050
     Dates: start: 20230817, end: 20230817
  31. FUROSEMIDE [Concomitant]
     Active Substance: FUROSEMIDE
     Dosage: 20 MILLIGRAM
     Route: 050
     Dates: start: 20230820, end: 20230820
  32. FUROSEMIDE [Concomitant]
     Active Substance: FUROSEMIDE
     Dosage: 40 MILLIGRAM
     Route: 050
     Dates: start: 20230827, end: 20230827
  33. FUROSEMIDE [Concomitant]
     Active Substance: FUROSEMIDE
     Dosage: 40 MILLIGRAM
     Route: 050
     Dates: start: 20230829, end: 20230901
  34. FUROSEMIDE [Concomitant]
     Active Substance: FUROSEMIDE
     Dosage: 40 MILLIGRAM
     Route: 050
     Dates: start: 20230904, end: 20230906
  35. HYDROCORTISONE [Concomitant]
     Active Substance: HYDROCORTISONE
     Indication: Adrenal insufficiency
     Dosage: 10/05/2005 MG
     Route: 050
  36. HYDROCORTISONE [Concomitant]
     Active Substance: HYDROCORTISONE
     Dosage: 20,10,10MG (20MG OM,10MG LUNCH AND EVENING); ;
     Route: 050
     Dates: start: 20230601
  37. HYDROCORTISONE [Concomitant]
     Active Substance: HYDROCORTISONE
     Dosage: 20/10/2010 MG
     Route: 050
     Dates: start: 20230601, end: 20230911
  38. POLYETHYLENE GLYCOL 3350\POTASSIUM CHLORIDE\SODIUM BICARBONATE\SODIUM [Concomitant]
     Active Substance: POLYETHYLENE GLYCOL 3350\POTASSIUM CHLORIDE\SODIUM BICARBONATE\SODIUM CHLORIDE
     Indication: Constipation
     Dosage: 1 DOSAGE FORM
     Route: 050
     Dates: start: 20230118
  39. LEVETIRACETAM [Concomitant]
     Active Substance: LEVETIRACETAM
     Indication: Seizure prophylaxis
     Dosage: 500 MILLIGRAM, TWO TIMES A DAY
     Route: 050
     Dates: start: 20230824, end: 20230906
  40. LEVETIRACETAM [Concomitant]
     Active Substance: LEVETIRACETAM
     Dosage: 1000 MILLIGRAM, TWO TIMES A DAY
     Route: 050
     Dates: start: 20230906, end: 20230921
  41. LEVOTHYROXINE [Concomitant]
     Active Substance: LEVOTHYROXINE\LEVOTHYROXINE SODIUM
     Indication: Hyperthyroidism
     Dosage: 125 MILLIGRAM, ONCE A DAY
     Route: 050
     Dates: start: 20200101, end: 20230928
  42. METOCLOPRAMIDE [Concomitant]
     Active Substance: METOCLOPRAMIDE
     Indication: Nausea
     Dosage: 10 MILLIGRAM, 3 TIMES A DAY
     Route: 050
     Dates: start: 20230701, end: 20230915
  43. MORPHINE [Concomitant]
     Active Substance: MORPHINE
     Indication: Pain
     Dosage: 5 MILLIGRAM, TWO TIMES A DAY
     Route: 050
     Dates: start: 20220303, end: 20230928
  44. MORPHINE SULFATE [Concomitant]
     Active Substance: MORPHINE SULFATE
     Indication: Pain
     Dosage: 5 MILLIGRAM, PRN
     Route: 050
     Dates: start: 20220303, end: 20231005
  45. MOVICOL [Concomitant]
     Active Substance: POLYETHYLENE GLYCOL 3350\POTASSIUM CHLORIDE\SODIUM BICARBONATE\SODIUM CHLORIDE
     Indication: Constipation
     Dosage: 1 DOSAGE FORM
     Route: 050
     Dates: start: 20230814, end: 20231001
  46. NYSTATIN [Concomitant]
     Active Substance: NYSTATIN
     Indication: Oral candidiasis
     Dosage: 1000,000 UNITS
     Route: 050
     Dates: start: 20230823, end: 20230830
  47. ONDANSETRON [Concomitant]
     Active Substance: ONDANSETRON
     Indication: Illness
     Dosage: 16 MILLIGRAM, ONCE A DAY
     Route: 048
     Dates: start: 20230816, end: 20230901
  48. ACETAMINOPHEN [Concomitant]
     Active Substance: ACETAMINOPHEN
     Indication: Analgesic therapy
     Dosage: 4 GRAM  (1 GM,4 IN 1 D)                                              (1 GM,4 IN 1 D)
     Route: 050
     Dates: start: 20220303
  49. SODIUM PHOSPHATE [Concomitant]
     Active Substance: SODIUM PHOSPHATE
     Indication: Blood phosphorus decreased
     Dosage: 32.2 MILLIMOLE, 3 TIMES A DAY
     Route: 050
     Dates: start: 20230823, end: 20230824
  50. SODIUM PHOSPHATE, MONOBASIC [Concomitant]
     Active Substance: SODIUM PHOSPHATE, MONOBASIC
     Indication: Blood phosphorus decreased
     Dosage: 32.2 MILLIMOLE, 3 TIMES A DAY
     Route: 050
     Dates: start: 20230823, end: 20230824
  51. PIPERACILLIN AND TAZOBACTAM [Concomitant]
     Active Substance: PIPERACILLIN SODIUM\TAZOBACTAM SODIUM
     Indication: Lower respiratory tract infection
     Dosage: 4 MILLIGRAM, FOUR TIMES/DAY
     Route: 050
     Dates: start: 20230824, end: 20230831
  52. PLATELETS [Concomitant]
     Active Substance: HUMAN PLATELET, ALLOGENIC
     Indication: Platelet count decreased
     Dosage: 1 DOSAGE FORM, ONCE A DAY
     Route: 050
     Dates: start: 20230907, end: 20230909
  53. POTASSIUM CHLORIDE [Concomitant]
     Active Substance: POTASSIUM CHLORIDE
     Indication: Hypokalaemia
     Dosage: 6 MILLIGRAM (6 GM)
     Route: 050
     Dates: start: 20230830, end: 20230830
  54. POTASSIUM CHLORIDE [Concomitant]
     Active Substance: POTASSIUM CHLORIDE
     Dosage: 600 MILLIGRAM, TWO TIMES A DAY
     Route: 050
     Dates: start: 20230908, end: 20230912
  55. HUMAN RED BLOOD CELL [Concomitant]
     Active Substance: HUMAN RED BLOOD CELL
     Indication: Fatigue
     Dosage: 1 -2 UNIT, ONCE A DAY
     Route: 050
     Dates: start: 20230814, end: 20230821
  56. POTASSIUM BICARBONATE\POTASSIUM CHLORIDE [Concomitant]
     Active Substance: POTASSIUM BICARBONATE\POTASSIUM CHLORIDE
     Indication: Hypokalaemia
     Dosage: 24 MILLIMOLE, 3 TIMES A DAY
     Route: 050
     Dates: start: 20230816, end: 20230901
  57. TAUROLIDINE [Concomitant]
     Active Substance: TAUROLIDINE
     Indication: Prophylaxis
     Dosage: 500 INTERNATIONAL UNIT
     Route: 050
     Dates: start: 20230822
  58. MORPHINE SULFATE [Concomitant]
     Active Substance: MORPHINE SULFATE
     Indication: Pain
     Dosage: 60 MILLIGRAM, TWO TIMES A DAY
     Route: 050
     Dates: start: 20230411, end: 20230814
  59. MORPHINE SULFATE [Concomitant]
     Active Substance: MORPHINE SULFATE
     Dosage: 70 MILLIGRAM, TWO TIMES A DAY
     Route: 050
     Dates: start: 20230814, end: 20230914

REACTIONS (5)
  - Cerebrovascular accident [Fatal]
  - Pneumonia aspiration [Fatal]
  - Cytokine release syndrome [Unknown]
  - Immune effector cell-associated neurotoxicity syndrome [Recovering/Resolving]
  - Hypoxia [Unknown]

NARRATIVE: CASE EVENT DATE: 20230824
